FAERS Safety Report 5149071-8 (Version None)
Quarter: 2006Q4

REPORT INFORMATION
  Report Type: 
  Country: None (occurrence: None)
  Receive Date: 20061113
  Receipt Date: 20061108
  Transmission Date: 20070319
  Serious: Yes (Hospitalization)
  Sender: FDA-Public Use
  Company Number: NL-BRISTOL-MYERS SQUIBB COMPANY-13570940

PATIENT
  Age: 46 Year
  Sex: Female

DRUGS (12)
  1. CARBOPLATIN [Suspect]
     Indication: OVARIAN CANCER
     Route: 042
     Dates: start: 20040205, end: 20040205
  2. CELECOXIB [Suspect]
     Indication: OVARIAN CANCER
     Route: 048
     Dates: start: 20040205
  3. DOCETAXEL [Suspect]
     Indication: OVARIAN CANCER
     Route: 042
     Dates: start: 20040205, end: 20040205
  4. PANTOPRAZOLE SODIUM [Concomitant]
     Dates: start: 20040203
  5. TEMAZEPAM [Concomitant]
  6. MOVICOLON [Concomitant]
  7. METFORMIN [Concomitant]
     Dates: end: 20040215
  8. GLICLAZIDE [Concomitant]
     Dates: end: 20040215
  9. DOMPERIDONE [Concomitant]
     Dates: start: 20040124
  10. TRAMADOL HCL [Concomitant]
     Dates: start: 20040126
  11. ACETAMINOPHEN [Concomitant]
  12. INSULATARD NPH HUMAN [Concomitant]
     Dates: end: 20040221

REACTIONS (4)
  - ASCITES [None]
  - DIARRHOEA [None]
  - HYPERGLYCAEMIA [None]
  - VOMITING [None]
